FAERS Safety Report 4626107-1 (Version None)
Quarter: 2005Q2

REPORT INFORMATION
  Report Type: 
  Country: None (occurrence: None)
  Receive Date: 20050404
  Receipt Date: 20050329
  Transmission Date: 20051028
  Serious: Yes (Other)
  Sender: FDA-Public Use
  Company Number: PHNU2005DE01473

PATIENT
  Sex: Male

DRUGS (5)
  1. CIBADREX [Concomitant]
  2. BAYOTENSIN [Concomitant]
  3. BELOC ZOK [Concomitant]
  4. ACETYLSALICYLIC ACID SRT [Concomitant]
  5. LOCOL [Suspect]
     Indication: HYPERCHOLESTEROLAEMIA
     Dosage: 80 MG, QD
     Route: 048

REACTIONS (1)
  - COMPLEX REGIONAL PAIN SYNDROME [None]
